FAERS Safety Report 25779120 (Version 1)
Quarter: 2025Q3

REPORT INFORMATION
  Report Type: Spontaneous
  Country: US (occurrence: None)
  Receive Date: 20250908
  Receipt Date: 20250908
  Transmission Date: 20251021
  Serious: Yes (Other)
  Sender: FDA-CTU
  Company Number: None

PATIENT
  Age: 66 Year
  Sex: Female

DRUGS (2)
  1. HUMIRA [Suspect]
     Active Substance: ADALIMUMAB
  2. REMICADE [Suspect]
     Active Substance: INFLIXIMAB

REACTIONS (3)
  - Pain in extremity [None]
  - Cardiac disorder [None]
  - Cardiac pacemaker insertion [None]
